FAERS Safety Report 12214608 (Version 1)
Quarter: 2016Q1

REPORT INFORMATION
  Report Type: Spontaneous
  Country: FR (occurrence: FR)
  Receive Date: 20160328
  Receipt Date: 20160328
  Transmission Date: 20160526
  Serious: Yes (Hospitalization)
  Sender: FDA-Public Use
  Company Number: FR-BAXTER-2016BAX013836

PATIENT
  Age: 72 Year
  Sex: Female

DRUGS (3)
  1. EPIRUBICINE MYLAN [Suspect]
     Active Substance: EPIRUBICIN
     Indication: INVASIVE DUCTAL BREAST CARCINOMA
     Dosage: FIRST COURSE OF FEC
     Route: 042
     Dates: start: 20150511
  2. ENDOXAN 1000 MG, POUDRE POUR SOLUTION INJECTABLE [Suspect]
     Active Substance: CYCLOPHOSPHAMIDE
     Indication: INVASIVE DUCTAL BREAST CARCINOMA
     Dosage: FIRST COURSE OF FEC
     Route: 042
     Dates: start: 20150511
  3. FLUOROURACILE ACCORD [Suspect]
     Active Substance: FLUOROURACIL
     Indication: INVASIVE DUCTAL BREAST CARCINOMA
     Dosage: FIRST COURSE OF FEC
     Route: 042
     Dates: start: 20150511

REACTIONS (6)
  - Urticaria [Recovering/Resolving]
  - Headache [Unknown]
  - Pruritus genital [Recovered/Resolved]
  - Febrile neutropenia [Recovered/Resolved]
  - Lung disorder [Recovered/Resolved]
  - Stomatitis [Recovered/Resolved]

NARRATIVE: CASE EVENT DATE: 201505
